FAERS Safety Report 5001043-X (Version None)
Quarter: 2006Q2

REPORT INFORMATION
  Report Type: 
  Country: None (occurrence: None)
  Receive Date: 20060512
  Receipt Date: 20060504
  Transmission Date: 20061013
  Serious: Yes (Hospitalization)
  Sender: FDA-Public Use
  Company Number: ZA-GLAXOSMITHKLINE-B0423051A

PATIENT
  Age: 12 Day
  Sex: Female
  Weight: 3.2 kg

DRUGS (5)
  1. ZIDOVUDINE [Suspect]
     Dosage: 12MG TWICE PER DAY
     Route: 048
     Dates: start: 20060220
  2. LAMIVUDINE [Suspect]
     Dosage: 6MG TWICE PER DAY
     Route: 048
     Dates: start: 20060220
  3. NELFINAVIR [Suspect]
     Dosage: 200MG TWICE PER DAY
     Route: 048
     Dates: start: 20060220
  4. NORMAL SALINE [Concomitant]
     Indication: CONJUNCTIVITIS
     Route: 050
     Dates: start: 20060303, end: 20060307
  5. CHLORAMEX [Concomitant]
     Indication: CONJUNCTIVITIS
     Route: 061
     Dates: start: 20060302

REACTIONS (5)
  - ASPARTATE AMINOTRANSFERASE INCREASED [None]
  - DIARRHOEA [None]
  - GASTROENTERITIS [None]
  - PYREXIA [None]
  - VOMITING [None]
